FAERS Safety Report 14381699 (Version 4)
Quarter: 2018Q2

REPORT INFORMATION
  Report Type: Report from Study
  Country: US (occurrence: US)
  Receive Date: 20180112
  Receipt Date: 20180515
  Transmission Date: 20180711
  Serious: Yes (Other)
  Sender: FDA-Public Use
  Company Number: US-TESARO, INC-US-2018TSO00147

PATIENT

DRUGS (3)
  1. ZEJULA [Suspect]
     Active Substance: NIRAPARIB
     Indication: OVARIAN CANCER
     Dosage: 300 MG, QD
     Route: 048
     Dates: start: 20171031, end: 20171222
  2. ZEJULA [Suspect]
     Active Substance: NIRAPARIB
     Dosage: 200 MG, QD
     Route: 048
     Dates: start: 20171229
  3. ZEJULA [Suspect]
     Active Substance: NIRAPARIB
     Dosage: 200 MG, QD
     Route: 048

REACTIONS (10)
  - Affect lability [Recovered/Resolved]
  - Emotional distress [Unknown]
  - Anxiety [Recovered/Resolved]
  - Diverticulitis [Recovered/Resolved]
  - Asthenia [Recovered/Resolved]
  - Psychomotor hyperactivity [Recovered/Resolved]
  - Depression [Recovered/Resolved]
  - Platelet count decreased [Recovered/Resolved]
  - Drug intolerance [Recovered/Resolved]
  - Feeling jittery [Recovered/Resolved]
